FAERS Safety Report 6534919-2 (Version None)
Quarter: 2010Q1

REPORT INFORMATION
  Report Type: 
  Country: None (occurrence: None)
  Receive Date: 20100112
  Receipt Date: 20100107
  Transmission Date: 20100710
  Serious: Yes (Other)
  Sender: FDA-Public Use
  Company Number: FR-AMGEN-US385228

PATIENT
  Age: 30 Year
  Sex: Female

DRUGS (2)
  1. ENBREL [Suspect]
     Indication: ANKYLOSING SPONDYLITIS
     Dosage: UNKNOWN
     Route: 058
  2. OFLOCET [Concomitant]
     Dosage: UNKNOWN
     Route: 065
     Dates: start: 20100104

REACTIONS (2)
  - LEUKOCYTOCLASTIC VASCULITIS [None]
  - PALPABLE PURPURA [None]
